FAERS Safety Report 9643294 (Version 1)
Quarter: 2013Q4

REPORT INFORMATION
  Report Type: Spontaneous
  Country: JP (occurrence: JP)
  Receive Date: 20131024
  Receipt Date: 20131024
  Transmission Date: 20140711
  Serious: Yes (Death, Hospitalization)
  Sender: FDA-Public Use
  Company Number: JP-B.I. PHARMACEUTICALS,INC./RIDGEFIELD-2013-BI-33828NB

PATIENT
  Age: 89 Year
  Sex: Female

DRUGS (2)
  1. MICARDIS [Suspect]
     Indication: HYPERTENSION
     Route: 048
     Dates: start: 20131007
  2. TAKEPRON [Concomitant]
     Indication: DECREASED APPETITE
     Route: 048
     Dates: start: 20131007

REACTIONS (1)
  - Rhabdomyolysis [Fatal]
